FAERS Safety Report 24744542 (Version 2)
Quarter: 2024Q4

REPORT INFORMATION
  Report Type: Spontaneous
  Country: US (occurrence: US)
  Receive Date: 20241217
  Receipt Date: 20241226
  Transmission Date: 20250114
  Serious: Yes (Hospitalization, Other)
  Sender: ORGANON
  Company Number: US-ORGANON-O2412USA001381

PATIENT
  Age: 76 Year
  Sex: Male

DRUGS (9)
  1. SINGULAIR [Suspect]
     Active Substance: MONTELUKAST SODIUM
     Indication: Hypersensitivity
     Dosage: 1 TABLET, QD (AT NIGHT)
     Route: 048
  2. SINGULAIR [Suspect]
     Active Substance: MONTELUKAST SODIUM
     Indication: Nasal congestion
  3. ENTRESTO [Suspect]
     Active Substance: SACUBITRIL\VALSARTAN
     Dosage: 24/26MG BID
     Route: 048
  4. ENTRESTO [Suspect]
     Active Substance: SACUBITRIL\VALSARTAN
     Dosage: 24/26MG BID
     Route: 048
  5. METFORMIN [Suspect]
     Active Substance: METFORMIN HYDROCHLORIDE
     Indication: Diabetes mellitus
     Dosage: UNK
  6. TORSEMIDE [Suspect]
     Active Substance: TORSEMIDE
     Dosage: UNK
     Dates: start: 2022
  7. SPIRONOLACTONE [Suspect]
     Active Substance: SPIRONOLACTONE
     Dosage: UNK
  8. MORNIFLUMATE [Suspect]
     Active Substance: MORNIFLUMATE
     Dosage: UNK
  9. INSULIN NOS [Suspect]
     Active Substance: INSULIN NOS
     Indication: Diabetes mellitus
     Dosage: UNK

REACTIONS (23)
  - Hypervolaemia [Unknown]
  - Dyspnoea [Unknown]
  - Urinary retention [Unknown]
  - Ejection fraction decreased [Unknown]
  - Faecaloma [Unknown]
  - Hypoacusis [Unknown]
  - Fall [Unknown]
  - Balance disorder [Unknown]
  - Gait disturbance [Unknown]
  - Contusion [Unknown]
  - Skin laceration [Unknown]
  - Injury [Unknown]
  - Muscular weakness [Unknown]
  - Asthma [Unknown]
  - Upper-airway cough syndrome [Unknown]
  - Cough [Unknown]
  - Fatigue [Unknown]
  - Urticaria [Recovered/Resolved]
  - Faeces soft [Recovered/Resolved]
  - Hypotension [Recovered/Resolved]
  - Weight decreased [Unknown]
  - Skin atrophy [Unknown]
  - Product use in unapproved indication [Unknown]

NARRATIVE: CASE EVENT DATE: 20220401
